FAERS Safety Report 6068875-0 (Version None)
Quarter: 2009Q1

REPORT INFORMATION
  Report Type: 
  Country: None (occurrence: None)
  Receive Date: 20090203
  Receipt Date: 20090122
  Transmission Date: 20090719
  Serious: Yes (Hospitalization)
  Sender: FDA-Public Use
  Company Number: 20096150

PATIENT
  Age: 48 Year
  Sex: Male

DRUGS (7)
  1. LIORESAL [Suspect]
     Indication: MUSCLE SPASTICITY
     Dosage: MCG, DAILY, INTRATHECAL
     Route: 037
  2. XATRAL [Concomitant]
  3. LYRICA [Concomitant]
  4. LEXOMIL [Concomitant]
  5. OGASTRO [Concomitant]
  6. SEROPRAM [Concomitant]
  7. NEURONTIN [Concomitant]

REACTIONS (7)
  - AGGRESSION [None]
  - CONFUSIONAL STATE [None]
  - DRY MOUTH [None]
  - DURAL FISTULA [None]
  - INCOHERENT [None]
  - MUSCLE SPASTICITY [None]
  - NIGHTMARE [None]
